FAERS Safety Report 14488068 (Version 2)
Quarter: 2018Q1

REPORT INFORMATION
  Report Type: Spontaneous
  Country: JP (occurrence: JP)
  Receive Date: 20180205
  Receipt Date: 20180307
  Transmission Date: 20180509
  Serious: Yes (Congenital Anomaly)
  Sender: FDA-Public Use
  Company Number: JP-JNJFOC-20180201143

PATIENT
  Age: 0 Day
  Sex: Male

DRUGS (1)
  1. REMICADE [Suspect]
     Active Substance: INFLIXIMAB
     Indication: PRODUCT USED FOR UNKNOWN INDICATION
     Route: 064
     Dates: start: 20090713, end: 20150328

REACTIONS (2)
  - Foetal exposure during pregnancy [Recovered/Resolved]
  - Anal atresia [Recovered/Resolved]

NARRATIVE: CASE EVENT DATE: 20150831
